FAERS Safety Report 15753464 (Version 1)
Quarter: 2018Q4

REPORT INFORMATION
  Report Type: Spontaneous
  Country: US (occurrence: US)
  Receive Date: 20181222
  Receipt Date: 20181222
  Transmission Date: 20190205
  Serious: No
  Sender: FDA-Public Use
  Company Number: US-MALLINCKRODT-T201802598

PATIENT
  Sex: Female

DRUGS (1)
  1. FENTANYL TRANSDERMAL SYSTEM [Suspect]
     Active Substance: FENTANYL
     Indication: BREAKTHROUGH PAIN
     Dosage: 50 MCG/HOUR, EVERY 72 HOURS
     Route: 062

REACTIONS (8)
  - Hyperhidrosis [Unknown]
  - Drug ineffective [Unknown]
  - Product adhesion issue [Unknown]
  - Withdrawal syndrome [Unknown]
  - Headache [Unknown]
  - Irritability [Unknown]
  - Rhinorrhoea [Unknown]
  - Dry mouth [Unknown]
